FAERS Safety Report 18377469 (Version 1)
Quarter: 2020Q4

REPORT INFORMATION
  Report Type: Spontaneous
  Country: US (occurrence: US)
  Receive Date: 20201013
  Receipt Date: 20201013
  Transmission Date: 20210114
  Serious: No
  Sender: FDA-Public Use
  Company Number: US-BEH-2020123199

PATIENT
  Sex: Female

DRUGS (11)
  1. HIZENTRA [Suspect]
     Active Substance: HUMAN IMMUNOGLOBULIN G
     Indication: HUMORAL IMMUNE DEFECT
     Dosage: 9 GRAM (45 ML), QW
     Route: 058
     Dates: start: 20190507
  2. REFRESH LIQUIGEL [Concomitant]
     Active Substance: CARBOXYMETHYLCELLULOSE SODIUM
  3. CEPHALEXIN [CEFALEXIN SODIUM] [Concomitant]
     Active Substance: CEPHALEXIN
  4. HIZENTRA [Suspect]
     Active Substance: HUMAN IMMUNOGLOBULIN G
     Dosage: 4 UNK
     Route: 058
  5. OLOPATADINE. [Concomitant]
     Active Substance: OLOPATADINE
  6. SF 5000 PLUS [Concomitant]
     Active Substance: SODIUM FLUORIDE
  7. HIZENTRA [Suspect]
     Active Substance: HUMAN IMMUNOGLOBULIN G
     Dosage: 1 GRAM
     Route: 058
  8. LOSARTAN. [Concomitant]
     Active Substance: LOSARTAN
  9. ATENOLOL. [Concomitant]
     Active Substance: ATENOLOL
  10. EZETIMIBE. [Concomitant]
     Active Substance: EZETIMIBE
  11. LORAZEPAM. [Concomitant]
     Active Substance: LORAZEPAM

REACTIONS (1)
  - Infusion site swelling [Not Recovered/Not Resolved]
